FAERS Safety Report 4631511-1 (Version None)
Quarter: 2005Q2

REPORT INFORMATION
  Report Type: 
  Country: None (occurrence: None)
  Receive Date: 20050407
  Receipt Date: 20050330
  Transmission Date: 20051028
  Serious: Yes (Other)
  Sender: FDA-Public Use
  Company Number: DE-2005-002605

PATIENT
  Sex: Female

DRUGS (1)
  1. MIRENA [Suspect]
     Dosage: 20 UG/DAY, CONT, INTRA-UTERINE
     Route: 015
     Dates: start: 20000101

REACTIONS (4)
  - AMENORRHOEA [None]
  - BLOOD HOMOCYSTEINE INCREASED [None]
  - CORONARY ARTERY INSUFFICIENCY [None]
  - PREMATURE MENOPAUSE [None]
